FAERS Safety Report 6294177-3 (Version None)
Quarter: 2009Q3

REPORT INFORMATION
  Report Type: 
  Country: None (occurrence: None)
  Receive Date: 20090803
  Receipt Date: 20090130
  Transmission Date: 20100115
  Serious: No
  Sender: FDA-Public Use
  Company Number: A0766052A

PATIENT
  Age: 43 Year
  Sex: Male

DRUGS (1)
  1. NICORETTE WHITE ICE OTC 4MG [Suspect]
     Dates: start: 20090130, end: 20090130

REACTIONS (3)
  - SWOLLEN TONGUE [None]
  - THROAT IRRITATION [None]
  - THROAT TIGHTNESS [None]
